FAERS Safety Report 18970440 (Version 2)
Quarter: 2021Q1

REPORT INFORMATION
  Report Type: Other
  Country: GB (occurrence: GB)
  Receive Date: 20210305
  Receipt Date: 20210322
  Transmission Date: 20210420
  Serious: Yes (Hospitalization, Other)
  Sender: FDA-Public Use
  Company Number: GB-CELLTRION INC.-2021GB002665

PATIENT

DRUGS (47)
  1. VINCRISTINE [Suspect]
     Active Substance: VINCRISTINE
     Indication: DIFFUSE LARGE B-CELL LYMPHOMA
     Dosage: 2MG/M2 EVERY 3 WEEKS; ON 08/JUL/2020, FROM 4:30 PM TO 4:40 PM, THE PATIENT RECEIVED THE MOST RECENT
     Route: 042
     Dates: start: 20200708
  2. TOCILIZUMAB. [Concomitant]
     Active Substance: TOCILIZUMAB
     Dosage: UNK
     Route: 042
     Dates: start: 20200805, end: 20200805
  3. PARACETAMOL [Concomitant]
     Active Substance: ACETAMINOPHEN
     Dosage: 1000 MG
     Route: 048
     Dates: start: 20200923, end: 20200923
  4. PARACETAMOL [Concomitant]
     Active Substance: ACETAMINOPHEN
     Dosage: 1000 MG
     Route: 048
     Dates: start: 20200808, end: 20200808
  5. DOXORUBICIN [Suspect]
     Active Substance: DOXORUBICIN
     Dosage: UNK
  6. VINCRISTINE [Suspect]
     Active Substance: VINCRISTINE
     Dosage: UNK
  7. CHLORPHENAMINE [Concomitant]
     Active Substance: CHLORPHENIRAMINE MALEATE
     Dosage: 10 MG
     Route: 042
     Dates: start: 20200826, end: 20200826
  8. CHLORPHENAMINE [Concomitant]
     Active Substance: CHLORPHENIRAMINE MALEATE
     Dosage: UNK
     Route: 042
     Dates: start: 20200805, end: 20200805
  9. PARACETAMOL [Concomitant]
     Active Substance: ACETAMINOPHEN
     Indication: PYREXIA
     Dosage: UNK
     Dates: start: 20200715, end: 20200720
  10. PARACETAMOL [Concomitant]
     Active Substance: ACETAMINOPHEN
     Dosage: 1000 MG
     Route: 048
     Dates: start: 20200902, end: 20200902
  11. CO?AMOXICLAV [AMOXICILLIN;CLAVULANATE POTASSIUM] [Concomitant]
     Active Substance: AMOXICILLIN\CLAVULANATE POTASSIUM
     Indication: PYREXIA
     Dosage: UNK
     Dates: start: 20200805, end: 20200810
  12. DOXORUBICIN [Suspect]
     Active Substance: DOXORUBICIN
     Indication: NON-HODGKIN^S LYMPHOMA
     Dosage: DATE OF MOST RECENT DOSE OF DOXORUBICIN (50 MG/M2) WAS ON 29/JUL/2020 AT 3:00 PM AND ENDED AT 3:40 P
     Route: 042
     Dates: start: 20200708
  13. VINCRISTINE [Suspect]
     Active Substance: VINCRISTINE
     Indication: NON-HODGKIN^S LYMPHOMA
     Dosage: DATE OF MOST RECENT DOSE OF VINCRISTINE (1.4 MG/M2) TO ADVERSE EVENT WAS ON 29/JUL/2020 AT 3:00 PM A
     Route: 042
     Dates: start: 20200708
  14. FILGRASTIM [Concomitant]
     Active Substance: FILGRASTIM
     Dosage: 300 MG
     Dates: start: 20200713
  15. BENDAMUSTINE [Concomitant]
     Active Substance: BENDAMUSTINE
     Dosage: UNK
  16. PARACETAMOL [Concomitant]
     Active Substance: ACETAMINOPHEN
     Dosage: UNK
     Route: 042
     Dates: start: 20200805
  17. HYDROCORTISONE. [Concomitant]
     Active Substance: HYDROCORTISONE
     Indication: CYTOKINE RELEASE SYNDROME
     Dosage: UNK
     Route: 042
     Dates: start: 20200805, end: 20200805
  18. RITUXIMAB (UNKNOWN) [Suspect]
     Active Substance: RITUXIMAB
     Indication: DIFFUSE LARGE B-CELL LYMPHOMA
     Dosage: 50MG/M2 EVERY 3 WEEKS; ON 08/JUL/2020, FROM 12:00 PM TO 3:34 PM, THE PATIENT RECEIVED THE MOST RECEN
     Route: 041
     Dates: start: 20200708
  19. CYCLOPHOSPHAMIDE. [Suspect]
     Active Substance: CYCLOPHOSPHAMIDE
     Dosage: UNK
  20. PREDNISOLONE. [Suspect]
     Active Substance: PREDNISOLONE
     Indication: NON-HODGKIN^S LYMPHOMA
     Dosage: DATE OF MOST RECENT DOSE OF STUDY DRUG PRIOR (50 MG) TO AE 31/JUL/2020 PREDNISONE ON DAY 1 MAY BE AD
     Route: 048
     Dates: start: 20200701
  21. CALCIUM [Concomitant]
     Active Substance: CALCIUM
     Dosage: UNK
  22. CHLORPHENAMINE [Concomitant]
     Active Substance: CHLORPHENIRAMINE MALEATE
     Dosage: 10 MG
     Route: 042
     Dates: start: 20200805, end: 20200805
  23. PARACETAMOL [Concomitant]
     Active Substance: ACETAMINOPHEN
     Indication: CYTOKINE RELEASE SYNDROME
     Dosage: 1000 MG
     Route: 048
     Dates: start: 20200729, end: 20200729
  24. CYCLOPHOSPHAMIDE. [Suspect]
     Active Substance: CYCLOPHOSPHAMIDE
     Indication: DIFFUSE LARGE B-CELL LYMPHOMA
     Dosage: 1120MG/M2 EVERY 3 WEEKS; ON 08/JUL/2020, FROM 4:00 PM TO 5:58 PM, THE PATIENT RECEIVED THE MOST RECE
     Route: 042
     Dates: start: 20200708
  25. DOXORUBICIN [Suspect]
     Active Substance: DOXORUBICIN
     Indication: DIFFUSE LARGE B-CELL LYMPHOMA
     Dosage: 70 MG/M2 EVERY 3 WEEKS; ON 08/JUL/2020, FROM 4:50 PM TO 4:55 PM, THE PATIENT RECEIVED THE MOST RECEN
     Route: 042
     Dates: start: 20200708
  26. PREDNISOLONE. [Suspect]
     Active Substance: PREDNISOLONE
     Indication: DIFFUSE LARGE B-CELL LYMPHOMA
     Dosage: 50 MG; ON 12/JUL/2020, THE PATIENT RECEIVED THE MOST RECENT DOSE OF PREDNISOLONE (100 MG) PRIOR TO S
     Route: 048
     Dates: start: 20200701
  27. ALLOPURINOL. [Concomitant]
     Active Substance: ALLOPURINOL
     Dosage: 300 MG
     Dates: start: 20200710
  28. CALCIUM [Concomitant]
     Active Substance: CALCIUM
     Dosage: UNK
     Dates: start: 2018
  29. PARACETAMOL [Concomitant]
     Active Substance: ACETAMINOPHEN
     Dosage: 1000 MG
     Route: 048
     Dates: start: 20200805, end: 20200805
  30. CO?AMOXICLAV [AMOXICILLIN;CLAVULANATE POTASSIUM] [Concomitant]
     Active Substance: AMOXICILLIN\CLAVULANATE POTASSIUM
     Dosage: UNK
     Dates: start: 20200805, end: 20200806
  31. RITUXIMAB (UNKNOWN) [Suspect]
     Active Substance: RITUXIMAB
     Indication: NON-HODGKIN^S LYMPHOMA
     Dosage: UNK
  32. CHLORPHENAMINE [Concomitant]
     Active Substance: CHLORPHENIRAMINE MALEATE
     Dosage: 10 MG
     Route: 042
     Dates: start: 20200808, end: 20200808
  33. CYCLOPHOSPHAMIDE. [Suspect]
     Active Substance: CYCLOPHOSPHAMIDE
     Indication: NON-HODGKIN^S LYMPHOMA
     Dosage: DATE OF MOST RECENT DOSE 750 MG/M2 OF CYCLOPHOSPHAMIDE PRIOR TO AE: 29/JUL/2020 AT 3:00 PM AND ENDED
     Route: 042
     Dates: start: 20200708
  34. ACYCLOVIR [ACICLOVIR] [Concomitant]
     Active Substance: ACYCLOVIR
     Dosage: 200 MG
     Dates: start: 20200708
  35. TOCILIZUMAB. [Concomitant]
     Active Substance: TOCILIZUMAB
     Indication: CYTOKINE RELEASE SYNDROME
     Dosage: UNK
     Route: 042
     Dates: start: 20200903, end: 20200903
  36. CHLORPHENAMINE [Concomitant]
     Active Substance: CHLORPHENIRAMINE MALEATE
     Indication: CYTOKINE RELEASE SYNDROME
     Dosage: 10 MG
     Route: 042
     Dates: start: 20200923, end: 20200923
  37. PIPERACILLIN/TAZOBACTAM [Concomitant]
     Active Substance: PIPERACILLIN SODIUM\TAZOBACTAM SODIUM
     Indication: PYREXIA
     Dosage: UNK
     Dates: start: 20200715, end: 20200719
  38. CO?AMOXICLAV [AMOXICILLIN;CLAVULANATE POTASSIUM] [Concomitant]
     Active Substance: AMOXICILLIN\CLAVULANATE POTASSIUM
     Indication: CYTOKINE RELEASE SYNDROME
     Dosage: UNK
     Dates: start: 20200719, end: 20200723
  39. RITUXIMAB (UNKNOWN) [Suspect]
     Active Substance: RITUXIMAB
     Dosage: DATE OF MOST RECENT DOSE OF RITUXIMAB (375 MG/M2) PRIOR TO ADVERSE EVENT: 29/JUL/2020 AT 11:00 AM AN
     Route: 041
     Dates: start: 20200708
  40. TAZOCIN [Concomitant]
     Active Substance: PIPERACILLIN SODIUM\TAZOBACTAM SODIUM
     Indication: CYTOKINE RELEASE SYNDROME
  41. TAZOCIN [Concomitant]
     Active Substance: PIPERACILLIN SODIUM\TAZOBACTAM SODIUM
     Dosage: 4.5 G
     Dates: start: 20200903
  42. DOMPERIDONE [Concomitant]
     Active Substance: DOMPERIDONE
     Dosage: 10 MG
     Dates: start: 20200708
  43. NORMAL SALINE [Concomitant]
     Active Substance: SODIUM CHLORIDE
     Indication: CYTOKINE RELEASE SYNDROME
     Dosage: UNK
     Dates: start: 20200805, end: 20200806
  44. CHLORPHENAMINE [Concomitant]
     Active Substance: CHLORPHENIRAMINE MALEATE
     Dosage: 10 UNK
     Route: 042
     Dates: start: 20200729, end: 20200829
  45. CHLORPHENAMINE [Concomitant]
     Active Substance: CHLORPHENIRAMINE MALEATE
     Dosage: 10 MG
     Route: 042
     Dates: start: 20200902, end: 20200902
  46. PARACETAMOL [Concomitant]
     Active Substance: ACETAMINOPHEN
     Dosage: UNK
     Route: 042
     Dates: start: 20200805, end: 20200807
  47. PARACETAMOL [Concomitant]
     Active Substance: ACETAMINOPHEN
     Dosage: 1000 MG
     Route: 048
     Dates: start: 20200826, end: 20200826

REACTIONS (4)
  - Neutropenia [Not Recovered/Not Resolved]
  - Underdose [Unknown]
  - Neutropenia [Not Recovered/Not Resolved]
  - Pyrexia [Recovered/Resolved]

NARRATIVE: CASE EVENT DATE: 20200714
